FAERS Safety Report 6177770-8 (Version None)
Quarter: 2009Q2

REPORT INFORMATION
  Report Type: 
  Country: None (occurrence: None)
  Receive Date: 20090501
  Receipt Date: 20090501
  Transmission Date: 20091009
  Serious: Yes (Life-Threatening)
  Sender: FDA-Public Use
  Company Number: None

PATIENT
  Age: 71 Year
  Sex: Male
  Weight: 131.5 kg

DRUGS (7)
  1. INSULIN ASPART [Suspect]
     Indication: TYPE 2 DIABETES MELLITUS
     Dosage: 15 UNITS SQ Q AM
     Route: 058
     Dates: start: 20090313, end: 20090315
  2. INSULIN GLARGINE [Suspect]
     Indication: TYPE 2 DIABETES MELLITUS
     Dosage: 30 UNITS SQ QHS
     Route: 058
     Dates: start: 20090313, end: 20090315
  3. DAPTOMYCIN [Concomitant]
  4. SENNA [Concomitant]
  5. METOPROLOL [Concomitant]
  6. FUROSEMIDE [Concomitant]
  7. EYE DROPS [Concomitant]

REACTIONS (5)
  - COLD SWEAT [None]
  - HYPERHIDROSIS [None]
  - HYPOGLYCAEMIA [None]
  - HYPOPHAGIA [None]
  - TREMOR [None]
